FAERS Safety Report 14323761 (Version 1)
Quarter: 2017Q4

REPORT INFORMATION
  Report Type: Report from Study
  Country: CA (occurrence: CA)
  Receive Date: 20171226
  Receipt Date: 20171226
  Transmission Date: 20180321
  Serious: Yes (Other)
  Sender: FDA-Public Use
  Company Number: CA-ROCHE-2041290

PATIENT
  Sex: Male

DRUGS (5)
  1. ALECENSARO [Suspect]
     Active Substance: ALECTINIB
     Indication: NON-SMALL CELL LUNG CANCER
     Dosage: THERAPY INTERRUPTED DUE TO EVENT
     Route: 048
     Dates: start: 20171025, end: 2017
  2. NABILONE [Concomitant]
     Active Substance: NABILONE
  3. DEXAMETHAZONE [Concomitant]
     Active Substance: DEXAMETHASONE
  4. ALECENSARO [Suspect]
     Active Substance: ALECTINIB
     Dosage: THERAPY RESTARTED AT REDUCED DOSE
     Route: 048
     Dates: start: 2017
  5. KEPPRA [Concomitant]
     Active Substance: LEVETIRACETAM

REACTIONS (2)
  - Confusional state [Recovering/Resolving]
  - Anxiety [Recovering/Resolving]
